FAERS Safety Report 24275338 (Version 3)
Quarter: 2024Q4

REPORT INFORMATION
  Report Type: Spontaneous
  Country: CA (occurrence: CA)
  Receive Date: 20240903
  Receipt Date: 20241026
  Transmission Date: 20250115
  Serious: Yes (Other)
  Sender: CELLTRION
  Company Number: CA-PFIZER INC-202400244251

PATIENT

DRUGS (12)
  1. INFLECTRA [Suspect]
     Active Substance: INFLIXIMAB-DYYB
     Indication: Colitis ulcerative
     Dosage: 500 MG, EVERY 8 WEEKS
     Route: 042
     Dates: start: 20240628, end: 20240628
  2. INFLECTRA [Suspect]
     Active Substance: INFLIXIMAB-DYYB
     Dosage: 500MG AFTER 10 WEEKS (AT WEEK 6, THEN Q 8 WEEKS)
     Route: 042
     Dates: start: 20240906
  3. ASACOL [Concomitant]
     Active Substance: MESALAMINE
     Dosage: 1 DF
  4. CALCIUM [Concomitant]
     Active Substance: CALCIUM
     Dosage: 1 DF
  5. CANDESARTAN [Concomitant]
     Active Substance: CANDESARTAN
     Dosage: 1 DF
  6. ENOXAPARIN [Concomitant]
     Active Substance: ENOXAPARIN
     Dosage: 1 DF
  7. INSULIN NOS [Concomitant]
     Active Substance: INSULIN NOS
     Dosage: 1 DF
  8. NALTREXONE [Concomitant]
     Active Substance: NALTREXONE
     Dosage: 1 DF
  9. PREDNISONE [Concomitant]
     Active Substance: PREDNISONE
     Dosage: 1 DF
  10. ROSUVASTATIN [Concomitant]
     Active Substance: ROSUVASTATIN
     Dosage: 1 DF
  11. VITAMIN B [Concomitant]
     Active Substance: VITAMIN B
     Dosage: 1 DF
  12. CHOLECALCIFEROL [Concomitant]
     Active Substance: CHOLECALCIFEROL
     Dosage: 1 DF

REACTIONS (3)
  - Animal scratch [Not Recovered/Not Resolved]
  - Cellulitis [Recovered/Resolved]
  - Condition aggravated [Not Recovered/Not Resolved]

NARRATIVE: CASE EVENT DATE: 20240801
